FAERS Safety Report 5823132-X (Version None)
Quarter: 2008Q3

REPORT INFORMATION
  Report Type: 
  Country: None (occurrence: None)
  Receive Date: 20080725
  Receipt Date: 20080721
  Transmission Date: 20090109
  Serious: Yes (Life-Threatening, Hospitalization)
  Sender: FDA-Public Use
  Company Number: US-MERCK-0807USA04029

PATIENT
  Age: 9 Year
  Sex: Male

DRUGS (6)
  1. SINGULAIR [Suspect]
     Indication: ASTHMA
     Route: 048
     Dates: start: 20000101
  2. SINGULAIR [Suspect]
     Indication: HYPERSENSITIVITY
     Route: 048
     Dates: start: 20000101
  3. ALBUTEROL [Concomitant]
     Route: 065
  4. ALLEGRA [Concomitant]
     Route: 065
  5. SINGULAIR [Suspect]
     Route: 048
     Dates: end: 20080101
  6. SINGULAIR [Suspect]
     Route: 048
     Dates: end: 20080101

REACTIONS (3)
  - ANXIETY [None]
  - DEPRESSION [None]
  - SUBSTANCE ABUSE [None]
